FAERS Safety Report 8144678-8 (Version None)
Quarter: 2012Q1

REPORT INFORMATION
  Report Type: 
  Country: None (occurrence: None)
  Receive Date: 20120217
  Receipt Date: 20120209
  Transmission Date: 20120608
  Serious: Yes (Hospitalization)
  Sender: FDA-Public Use
  Company Number: US-US-EMD SERONO, INC.-7112639

PATIENT
  Sex: Female
  Weight: 110 kg

DRUGS (4)
  1. METFORMIN HCL [Concomitant]
     Indication: DIABETES MELLITUS
  2. ACTOS [Concomitant]
     Indication: DIABETES MELLITUS
  3. NUMEROUS BLOOD PRESSURE MEDICATIONS [Concomitant]
     Indication: HYPERTENSION
  4. REBIF [Suspect]
     Indication: MULTIPLE SCLEROSIS
     Route: 058
     Dates: start: 20100629

REACTIONS (5)
  - SINUS CONGESTION [None]
  - DYSKINESIA [None]
  - COUGH [None]
  - ARTHROPATHY [None]
  - PYREXIA [None]
